FAERS Safety Report 16003019 (Version 3)
Quarter: 2021Q3

REPORT INFORMATION
  Report Type: Spontaneous
  Country: US (occurrence: US)
  Receive Date: 20190225
  Receipt Date: 20210825
  Transmission Date: 20211014
  Serious: Yes (Other)
  Sender: FDA-Public Use
  Company Number: US-SA-2019SA049803

PATIENT
  Age: 40 Year
  Sex: Male

DRUGS (1)
  1. AUBAGIO [Suspect]
     Active Substance: TERIFLUNOMIDE
     Indication: MULTIPLE SCLEROSIS
     Dosage: 14 MG, QD
     Route: 048
     Dates: start: 20180123

REACTIONS (5)
  - Hypoaesthesia [Unknown]
  - Fatigue [Unknown]
  - Paraesthesia [Unknown]
  - Depressive symptom [Unknown]
  - Band sensation [Not Recovered/Not Resolved]

NARRATIVE: CASE EVENT DATE: 202106
